FAERS Safety Report 4490555-3 (Version None)
Quarter: 2004Q4

REPORT INFORMATION
  Report Type: 
  Country: None (occurrence: None)
  Receive Date: 20041027
  Receipt Date: 20041020
  Transmission Date: 20050328
  Serious: Yes (Hospitalization, Other)
  Sender: FDA-Public Use
  Company Number: DEWYE110014OCT04

PATIENT
  Age: 46 Year
  Sex: Female

DRUGS (16)
  1. TACROLIMUS, CONTROL FOR SIROLIMUS  (TACROLIMUS, CONTROL  FOR SIROLIMOS [Suspect]
     Indication: RENAL TRANSPLANT
     Dosage: SEE IMAGE
     Dates: start: 20040811, end: 20010811
  2. TACROLIMUS, CONTROL FOR SIROLIMUS  (TACROLIMUS, CONTROL  FOR SIROLIMOS [Suspect]
     Indication: RENAL TRANSPLANT
     Dosage: SEE IMAGE
     Dates: start: 20040709, end: 20040711
  3. TACROLIMUS, CONTROL FOR SIROLIMUS  (TACROLIMUS, CONTROL  FOR SIROLIMOS [Suspect]
     Indication: RENAL TRANSPLANT
     Dosage: SEE IMAGE
     Dates: start: 20040712, end: 20040713
  4. TACROLIMUS, CONTROL FOR SIROLIMUS  (TACROLIMUS, CONTROL  FOR SIROLIMOS [Suspect]
     Indication: RENAL TRANSPLANT
     Dosage: SEE IMAGE
     Dates: start: 20040714, end: 20040714
  5. TACROLIMUS, CONTROL FOR SIROLIMUS  (TACROLIMUS, CONTROL  FOR SIROLIMOS [Suspect]
     Indication: RENAL TRANSPLANT
     Dosage: SEE IMAGE
     Dates: start: 20040715, end: 20040810
  6. TACROLIMUS, CONTROL FOR SIROLIMUS  (TACROLIMUS, CONTROL  FOR SIROLIMOS [Suspect]
     Indication: RENAL TRANSPLANT
     Dosage: SEE IMAGE
     Dates: start: 20040812, end: 20040815
  7. TACROLIMUS, CONTROL FOR SIROLIMUS  (TACROLIMUS, CONTROL  FOR SIROLIMOS [Suspect]
     Indication: RENAL TRANSPLANT
     Dosage: SEE IMAGE
     Dates: start: 20040816, end: 20040819
  8. MYCOPHENOLATE MOFETIL(MYCOPHENOLATE MOFETIL) [Concomitant]
  9. URVASON (METHYLPREDNISOLONE) [Concomitant]
  10. ZENAPAX [Concomitant]
  11. ACYCLOVIR [Concomitant]
  12. FUROSEMIDE 9FUROSEMIDE) [Concomitant]
  13. LORMETAZEPAM (LORMETAZEPAM) [Concomitant]
  14. AMPHOTERICIN B [Concomitant]
  15. BISEKO (ALBUMIN NORMAL HUMAN SERUM/IMMUNOGLOBULIN HUMAN NORMAL) [Concomitant]
  16. DOPAMINE HCL [Concomitant]

REACTIONS (2)
  - DRUG TOXICITY [None]
  - TRANSPLANT REJECTION [None]
